FAERS Safety Report 19584881 (Version 1)
Quarter: 2021Q3

REPORT INFORMATION
  Report Type: Spontaneous
  Country: GB (occurrence: GB)
  Receive Date: 20210720
  Receipt Date: 20210720
  Transmission Date: 20211014
  Serious: Yes (Other)
  Sender: FDA-Public Use
  Company Number: GB-B.BRAUN MEDICAL INC.-2114045

PATIENT
  Age: 47 Year
  Sex: Female

DRUGS (8)
  1. METRONIDAZOLE INJECTION USP (5 MG/ML) IN PAB? PLASTIC CONTAINER (NDA 0 [Suspect]
     Active Substance: METRONIDAZOLE
  2. CHLORPHENIRAMINE. [Concomitant]
     Active Substance: CHLORPHENIRAMINE
     Dates: start: 20210202
  3. CARBOCISTEINE [Concomitant]
     Active Substance: CARBOCYSTEINE
     Dates: start: 20210202
  4. CALCIUM CARBONATE WITH VITAMIN D (CHOLECALCIFEROL) [Concomitant]
     Active Substance: CALCIUM CARBONATE\CHOLECALCIFEROL
     Dates: start: 20201020
  5. CALCIPOTRIOL [Concomitant]
     Active Substance: CALCIPOTRIENE
  6. AMAMYS (FLUTICASONE FUROATE) [Concomitant]
  7. CITALOPRAM [Concomitant]
     Active Substance: CITALOPRAM HYDROBROMIDE
     Dates: start: 20210202
  8. COLOFAC [Concomitant]
     Active Substance: MEBEVERINE HYDROCHLORIDE
     Dates: start: 20191220

REACTIONS (14)
  - Diverticulum intestinal [Unknown]
  - Hyperthyroidism [Unknown]
  - Migraine [Unknown]
  - Tinnitus [Unknown]
  - Uterine leiomyoma [Unknown]
  - Hypersensitivity [Unknown]
  - Suspected COVID-19 [Unknown]
  - Anaphylactic reaction [Unknown]
  - Polyp [Recovered/Resolved]
  - Rotator cuff syndrome [Unknown]
  - Chest discomfort [Unknown]
  - Bursitis [None]
  - Bronchiectasis [Unknown]
  - Presbyacusis [Unknown]

NARRATIVE: CASE EVENT DATE: 20171113
